FAERS Safety Report 19459487 (Version 1)
Quarter: 2021Q2

REPORT INFORMATION
  Report Type: Spontaneous
  Country: US (occurrence: US)
  Receive Date: 20210625
  Receipt Date: 20210625
  Transmission Date: 20210717
  Serious: Yes (Hospitalization)
  Sender: FDA-Public Use
  Company Number: None

PATIENT
  Age: 53 Year
  Sex: Female

DRUGS (22)
  1. FIORICET [Concomitant]
     Active Substance: ACETAMINOPHEN\BUTALBITAL\CAFFEINE
  2. FLOVENT [Concomitant]
     Active Substance: FLUTICASONE PROPIONATE
  3. LANTUS [Concomitant]
     Active Substance: INSULIN GLARGINE
  4. MYRBETRIQ [Concomitant]
     Active Substance: MIRABEGRON
  5. PROAIR HFA [Concomitant]
     Active Substance: ALBUTEROL SULFATE
  6. PYRIDOSTIGM [Concomitant]
  7. BACLOFEN. [Concomitant]
     Active Substance: BACLOFEN
  8. BYSTOLIC [Concomitant]
     Active Substance: NEBIVOLOL HYDROCHLORIDE
  9. FLUTICASONE. [Concomitant]
     Active Substance: FLUTICASONE
  10. OMEPRAZOLE. [Concomitant]
     Active Substance: OMEPRAZOLE
  11. POTASSIUM [Concomitant]
     Active Substance: POTASSIUM
  12. PREDNISONE. [Concomitant]
     Active Substance: PREDNISONE
  13. REPATHA [Suspect]
     Active Substance: EVOLOCUMAB
     Indication: HYPERLIPIDAEMIA
     Dosage: ?          OTHER FREQUENCY:EVERY 2 WEEKS;?
     Route: 058
     Dates: start: 20190326
  14. FLORASTOR [Concomitant]
     Active Substance: SACCHAROMYCES CEREVISIAE
  15. FUROSEMIDE. [Concomitant]
     Active Substance: FUROSEMIDE
  16. GABAPENTIN. [Concomitant]
     Active Substance: GABAPENTIN
  17. LIDOCAINE. [Concomitant]
     Active Substance: LIDOCAINE
  18. ZYRTEC [Concomitant]
     Active Substance: CETIRIZINE HYDROCHLORIDE
  19. ALBUTEROL. [Concomitant]
     Active Substance: ALBUTEROL
  20. NOVOLOG [Concomitant]
     Active Substance: INSULIN ASPART
  21. OMEGA 3 [Concomitant]
     Active Substance: OMEGA-3 FATTY ACIDS
  22. IMURAN [Concomitant]
     Active Substance: AZATHIOPRINE

REACTIONS (1)
  - Immune system disorder [None]

NARRATIVE: CASE EVENT DATE: 20210624
